FAERS Safety Report 23672951 (Version 2)
Quarter: 2024Q2

REPORT INFORMATION
  Report Type: Report from Study
  Country: PE (occurrence: PE)
  Receive Date: 20240326
  Receipt Date: 20240401
  Transmission Date: 20240716
  Serious: Yes (Hospitalization)
  Sender: FDA-Public Use
  Company Number: PE-AstraZeneca-2024A069753

PATIENT
  Age: 129 Day
  Sex: Female

DRUGS (1)
  1. SYNAGIS [Suspect]
     Active Substance: PALIVIZUMAB
     Indication: Respiratory disorder
     Dosage: 15 MG/KG MONTHLY
     Route: 030
     Dates: start: 20240220

REACTIONS (4)
  - Intentional dose omission [Unknown]
  - Laryngomalacia [Unknown]
  - Nasal congestion [Unknown]
  - Apnoea [Unknown]

NARRATIVE: CASE EVENT DATE: 20240319
